FAERS Safety Report 16508098 (Version 1)
Quarter: 2019Q3

REPORT INFORMATION
  Report Type: Report from Study
  Country: None (occurrence: US)
  Receive Date: 20190702
  Receipt Date: 20190702
  Transmission Date: 20191004
  Serious: Yes (Other)
  Sender: FDA-Public Use
  Company Number: US-ABBVIE-19K-163-2735824-00

PATIENT
  Age: 85 Year
  Sex: Female

DRUGS (1)
  1. VENCLEXTA [Suspect]
     Active Substance: VENETOCLAX
     Indication: CHRONIC LYMPHOCYTIC LEUKAEMIA
     Route: 048
     Dates: start: 2017

REACTIONS (7)
  - Diarrhoea [Recovered/Resolved]
  - Mobility decreased [Recovering/Resolving]
  - Protein total decreased [Unknown]
  - Swelling [Recovering/Resolving]
  - Anaemia [Recovering/Resolving]
  - Dysphonia [Recovering/Resolving]
  - Hodgkin^s disease [Unknown]

NARRATIVE: CASE EVENT DATE: 2017
